FAERS Safety Report 11670698 (Version 1)
Quarter: 2015Q4

REPORT INFORMATION
  Report Type: Spontaneous
  Country: US (occurrence: US)
  Receive Date: 20151027
  Receipt Date: 20151027
  Transmission Date: 20160304
  Serious: No
  Sender: FDA-Public Use
  Company Number: US-ELI_LILLY_AND_COMPANY-US201001002578

PATIENT
  Age: 88 Year
  Sex: Female

DRUGS (4)
  1. FORTEO [Suspect]
     Active Substance: TERIPARATIDE
     Dosage: 20 UG, DAILY (1/D)
     Dates: end: 20100501
  2. FORTEO [Suspect]
     Active Substance: TERIPARATIDE
     Dosage: 20 UG, DAILY (1/D)
     Dates: start: 2010
  3. INFLUENZA VIRUS VACCINE, SWINE NOS [Concomitant]
     Active Substance: INFLUENZA VIRUS VACCINE, SWINE
     Dosage: UNK, UNK
     Dates: start: 20100205, end: 20100205
  4. FORTEO [Suspect]
     Active Substance: TERIPARATIDE
     Indication: OSTEOPOROSIS
     Dosage: 20 UG, DAILY (1/D)
     Dates: start: 200905, end: 2009

REACTIONS (16)
  - Weight decreased [Unknown]
  - Pain in extremity [Unknown]
  - Body temperature increased [Unknown]
  - Coccidioidomycosis [Unknown]
  - Rhinorrhoea [Unknown]
  - Fall [Recovered/Resolved]
  - Injection site bruising [Unknown]
  - Bed rest [Recovered/Resolved]
  - Arthralgia [Recovered/Resolved]
  - Superficial vein prominence [Not Recovered/Not Resolved]
  - Malaise [Recovered/Resolved]
  - Hypersomnia [Unknown]
  - Cutis laxa [Unknown]
  - Nasopharyngitis [Unknown]
  - Medical diet [Unknown]
  - Fear [Unknown]

NARRATIVE: CASE EVENT DATE: 201002
